FAERS Safety Report 12265932 (Version 1)
Quarter: 2016Q2

REPORT INFORMATION
  Report Type: Spontaneous
  Country: US (occurrence: US)
  Receive Date: 20160413
  Receipt Date: 20160413
  Transmission Date: 20160815
  Serious: No
  Sender: FDA-Public Use
  Company Number: US-TEIKOKU PHARMA USA-TPU2016-00214

PATIENT
  Sex: Female
  Weight: 54.03 kg

DRUGS (2)
  1. SYNTHROID [Concomitant]
     Active Substance: LEVOTHYROXINE SODIUM
     Indication: THYROID DISORDER
     Route: 048
  2. LIDODERM [Suspect]
     Active Substance: LIDOCAINE
     Indication: ARTHRITIS
     Route: 061
     Dates: end: 2015

REACTIONS (2)
  - Arthritis [Not Recovered/Not Resolved]
  - Body height decreased [Not Recovered/Not Resolved]
